FAERS Safety Report 20584241 (Version 2)
Quarter: 2022Q2

REPORT INFORMATION
  Report Type: Other
  Country: JP (occurrence: JP)
  Receive Date: 20220311
  Receipt Date: 20220405
  Transmission Date: 20220721
  Serious: Yes (Other)
  Sender: FDA-Public Use
  Company Number: JP-DSPHARMA-2022DSP002879

PATIENT
  Age: 61 Year
  Sex: Female

DRUGS (5)
  1. LATUDA [Suspect]
     Active Substance: LURASIDONE HYDROCHLORIDE
     Indication: Schizophrenia
     Dosage: 80 MG, QD
     Route: 048
  2. BLONANSERIN [Suspect]
     Active Substance: BLONANSERIN
     Indication: Schizophrenia
     Dosage: 80 MG, QD
     Route: 062
     Dates: start: 20211007
  3. BLONANSERIN [Suspect]
     Active Substance: BLONANSERIN
     Dosage: 40 MG, QD
     Route: 062
  4. OLANZAPINE [Suspect]
     Active Substance: OLANZAPINE
     Indication: Schizophrenia
     Dosage: 10 MG, QD
     Route: 065
  5. LEVOMEPROMAZINE [Suspect]
     Active Substance: LEVOMEPROMAZINE
     Indication: Schizophrenia
     Dosage: 5 MG, QD
     Route: 048

REACTIONS (5)
  - Suicidal ideation [Unknown]
  - Intentional self-injury [Unknown]
  - Hallucination, auditory [Unknown]
  - Delusion [Unknown]
  - Sedation complication [Unknown]

NARRATIVE: CASE EVENT DATE: 20211007
